FAERS Safety Report 13521922 (Version 1)
Quarter: 2017Q2

REPORT INFORMATION
  Report Type: Report from Study
  Country: US (occurrence: US)
  Receive Date: 20170508
  Receipt Date: 20170508
  Transmission Date: 20170830
  Serious: Yes (Hospitalization)
  Sender: FDA-Public Use
  Company Number: US-ASTRAZENECA-2017SE48670

PATIENT
  Age: 42 Year
  Sex: Female
  Weight: 87.1 kg

DRUGS (3)
  1. DALIRESP [Suspect]
     Active Substance: ROFLUMILAST
     Indication: ASTHMA
     Route: 048
     Dates: start: 2016
  2. ALBUTEROL. [Concomitant]
     Active Substance: ALBUTEROL
     Indication: ASTHMA
     Dosage: AS REQUIRED
     Route: 055
     Dates: start: 2016
  3. PREDNISONE. [Concomitant]
     Active Substance: PREDNISONE

REACTIONS (18)
  - Dyspnoea [Recovering/Resolving]
  - Hypertension [Recovering/Resolving]
  - Emphysema [Not Recovered/Not Resolved]
  - Rotavirus infection [Recovered/Resolved]
  - Thyroid mass [Unknown]
  - Drug dose omission [Not Recovered/Not Resolved]
  - Product use in unapproved indication [Not Recovered/Not Resolved]
  - Aspiration [Unknown]
  - Myocardial infarction [Recovered/Resolved]
  - Hypersensitivity [Not Recovered/Not Resolved]
  - Weight increased [Not Recovered/Not Resolved]
  - Headache [Recovered/Resolved]
  - Weight control [Not Recovered/Not Resolved]
  - Heart rate increased [Recovered/Resolved]
  - Nasal cyst [Not Recovered/Not Resolved]
  - Chest pain [Recovering/Resolving]
  - Asthma [Unknown]
  - Off label use [Not Recovered/Not Resolved]

NARRATIVE: CASE EVENT DATE: 2016
